FAERS Safety Report 8199145-2 (Version None)
Quarter: 2012Q1

REPORT INFORMATION
  Report Type: 
  Country: None (occurrence: None)
  Receive Date: 20120309
  Receipt Date: 20120229
  Transmission Date: 20120608
  Serious: Yes (Life-Threatening, Hospitalization)
  Sender: FDA-Public Use
  Company Number: JP-AMGEN-JPNCT2012006159

PATIENT
  Age: 72 Year
  Sex: Male
  Weight: 50 kg

DRUGS (9)
  1. ISOVORIN [Concomitant]
     Indication: COLORECTAL CANCER
     Dosage: 300 MG, Q2WK
     Route: 041
     Dates: start: 20111105, end: 20111224
  2. LEUPROLIDE ACETATE [Concomitant]
     Indication: PROSTATE CANCER
     Route: 058
     Dates: start: 20111014
  3. FLUOROURACIL [Concomitant]
     Indication: COLORECTAL CANCER
     Dosage: UNK UNK, Q2WK
     Dates: start: 20111105, end: 20111226
  4. ALOXI [Concomitant]
     Indication: PROPHYLAXIS
     Dosage: 0.75 MG, Q2WK
     Route: 041
     Dates: start: 20111105
  5. OXALIPLATIN [Concomitant]
     Indication: COLORECTAL CANCER
     Route: 041
     Dates: start: 20111105, end: 20111224
  6. ZOMETA [Concomitant]
     Indication: METASTASES TO BONE
     Dosage: 4 MG, UNK
     Route: 041
     Dates: start: 20111020
  7. PANITUMUMAB [Suspect]
     Indication: COLORECTAL CANCER
     Dosage: 330 MG, Q2WK
     Route: 042
     Dates: start: 20111105, end: 20111224
  8. CASODEX [Concomitant]
     Indication: PROSTATE CANCER
     Dosage: 80 MG, QD
     Route: 048
     Dates: start: 20111015
  9. DECADRON [Concomitant]
     Indication: PROPHYLAXIS
     Dosage: UNK UNK, Q2WK
     Route: 041
     Dates: start: 20111105

REACTIONS (3)
  - ILEAL PERFORATION [None]
  - NASOPHARYNGITIS [None]
  - INTESTINAL OBSTRUCTION [None]
